FAERS Safety Report 8465005-2 (Version None)
Quarter: 2012Q2

REPORT INFORMATION
  Report Type: 
  Country: None (occurrence: None)
  Receive Date: 20120619
  Receipt Date: 20120604
  Transmission Date: 20120825
  Serious: Yes (Other)
  Sender: FDA-Public Use
  Company Number: 2012P1037986

PATIENT
  Age: 67 Year
  Sex: Female

DRUGS (3)
  1. METRONIDAZOLE [Suspect]
     Indication: BILE DUCT STONE
     Dosage: 500 MG; IV 250 MG; X1; PO
     Route: 048
  2. METRONIDAZOLE [Concomitant]
  3. CIPROFLOXACIN [Concomitant]

REACTIONS (9)
  - PRURITUS [None]
  - ANGIOEDEMA [None]
  - VOMITING [None]
  - NAUSEA [None]
  - PYREXIA [None]
  - DRUG RASH WITH EOSINOPHILIA AND SYSTEMIC SYMPTOMS [None]
  - PRESYNCOPE [None]
  - URTICARIA [None]
  - ANAPHYLACTIC REACTION [None]
